FAERS Safety Report 15119425 (Version 2)
Quarter: 2022Q4

REPORT INFORMATION
  Report Type: Other
  Country: MX (occurrence: None)
  Receive Date: 20180709
  Receipt Date: 20221118
  Transmission Date: 20230112
  Serious: Yes (Death, Hospitalization)
  Sender: FDA-Public Use
  Company Number: MX-ROCHE-2151376

PATIENT
  Age: 49 Year
  Sex: Male

DRUGS (1)
  1. ALTEPLASE [Suspect]
     Active Substance: ALTEPLASE
     Indication: Myocardial infarction
     Route: 065

REACTIONS (4)
  - Death [Fatal]
  - Angina pectoris [Unknown]
  - Coronary artery aneurysm [Unknown]
  - Cardiogenic shock [Unknown]
